FAERS Safety Report 5153843-3 (Version None)
Quarter: 2006Q4

REPORT INFORMATION
  Report Type: 
  Country: None (occurrence: None)
  Receive Date: 20061120
  Receipt Date: 20061109
  Transmission Date: 20070319
  Serious: Yes (Death)
  Sender: FDA-Public Use
  Company Number: US-JNJFOC-20061102774

PATIENT
  Sex: Male
  Weight: 142.88 kg

DRUGS (1)
  1. CISAPRIDE [Suspect]
     Indication: DIABETIC GASTROPARESIS
     Route: 048

REACTIONS (5)
  - HYPERKALAEMIA [None]
  - MULTI-ORGAN FAILURE [None]
  - RENAL FAILURE [None]
  - RESPIRATORY FAILURE [None]
  - SEPSIS SYNDROME [None]
